FAERS Safety Report 7701239-X (Version None)
Quarter: 2011Q3

REPORT INFORMATION
  Report Type: 
  Country: None (occurrence: None)
  Receive Date: 20110822
  Receipt Date: 20110815
  Transmission Date: 20111222
  Serious: Yes (Other)
  Sender: FDA-Public Use
  Company Number: US-GLAXOSMITHKLINE-A0941095A

PATIENT
  Age: 29 Year
  Sex: Female

DRUGS (2)
  1. NO CONCURRENT MEDICATION [Concomitant]
  2. DYAZIDE [Suspect]
     Indication: HYPERTENSION
     Dosage: 25MG PER DAY
     Route: 048
     Dates: start: 19820930, end: 19821111

REACTIONS (5)
  - LOSS OF CONSCIOUSNESS [None]
  - BALANCE DISORDER [None]
  - HEADACHE [None]
  - DYSARTHRIA [None]
  - WALKING AID USER [None]
